FAERS Safety Report 13401480 (Version 2)
Quarter: 2017Q2

REPORT INFORMATION
  Report Type: Report from Study
  Country: None (occurrence: TW)
  Receive Date: 20170404
  Receipt Date: 20170425
  Transmission Date: 20170830
  Serious: Yes (Hospitalization)
  Sender: FDA-Public Use
  Company Number: TW-ABBVIE-17P-153-1922195-00

PATIENT
  Age: 17 Year
  Sex: Female
  Weight: 58 kg

DRUGS (5)
  1. ETORICOXIB [Concomitant]
     Active Substance: ETORICOXIB
     Indication: PRODUCT USED FOR UNKNOWN INDICATION
     Route: 048
     Dates: start: 2010
  2. HUMIRA [Suspect]
     Active Substance: ADALIMUMAB
     Route: 058
     Dates: start: 20170410
  3. HUMIRA [Suspect]
     Active Substance: ADALIMUMAB
     Indication: JUVENILE IDIOPATHIC ARTHRITIS
     Route: 058
     Dates: start: 20161209, end: 20170227
  4. LEFLUNOMIDE. [Concomitant]
     Active Substance: LEFLUNOMIDE
     Indication: PSORIATIC ARTHROPATHY
     Route: 048
     Dates: start: 20160608
  5. SULFASALAZINE. [Concomitant]
     Active Substance: SULFASALAZINE
     Indication: PSORIATIC ARTHROPATHY
     Route: 048
     Dates: start: 2010

REACTIONS (4)
  - Pyrexia [Recovered/Resolved]
  - Temporomandibular joint syndrome [Recovered/Resolved]
  - Joint swelling [Recovering/Resolving]
  - Sarcoidosis [Not Recovered/Not Resolved]

NARRATIVE: CASE EVENT DATE: 201703
